FAERS Safety Report 26216924 (Version 1)
Quarter: 2025Q4

REPORT INFORMATION
  Report Type: Report from Study
  Country: US (occurrence: US)
  Receive Date: 20251231
  Receipt Date: 20251231
  Transmission Date: 20260117
  Serious: Yes (Death, Other)
  Sender: ROCHE
  Company Number: US-ROCHE-10000468974

PATIENT

DRUGS (5)
  1. ATEZOLIZUMAB [Suspect]
     Active Substance: ATEZOLIZUMAB
     Indication: Neoplasm malignant
  2. NIVOLUMAB [Suspect]
     Active Substance: NIVOLUMAB
     Indication: Neoplasm malignant
  3. IPILIMUMAB [Suspect]
     Active Substance: IPILIMUMAB
     Indication: Neoplasm malignant
  4. AVELUMAB [Suspect]
     Active Substance: AVELUMAB
     Indication: Neoplasm malignant
  5. PEMBROLIZUMAB [Suspect]
     Active Substance: PEMBROLIZUMAB
     Indication: Neoplasm malignant

REACTIONS (7)
  - Encephalitis [Fatal]
  - Neuropathy peripheral [Unknown]
  - Demyelination [Unknown]
  - Neuromyopathy [Fatal]
  - Myopathy [Unknown]
  - Meningitis [Unknown]
  - Status epilepticus [Unknown]
